FAERS Safety Report 6934484-1 (Version None)
Quarter: 2010Q3

REPORT INFORMATION
  Report Type: 
  Country: None (occurrence: None)
  Receive Date: 20100820
  Receipt Date: 20100812
  Transmission Date: 20110219
  Serious: Yes (Hospitalization, Other)
  Sender: FDA-Public Use
  Company Number: US-CELGENEUS-163-21880-10081022

PATIENT
  Age: 67 Year
  Sex: Male
  Weight: 73.9 kg

DRUGS (10)
  1. REVLIMID [Suspect]
     Indication: PROSTATE CANCER METASTATIC
     Route: 048
     Dates: start: 20100608
  2. REVLIMID [Suspect]
     Route: 048
     Dates: start: 20100719, end: 20100801
  3. DOCETAXEL [Suspect]
     Indication: PROSTATE CANCER METASTATIC
     Route: 051
     Dates: start: 20100608
  4. DOCETAXEL [Suspect]
     Route: 051
     Dates: start: 20100719, end: 20100719
  5. BEVACIZUMAB [Suspect]
     Indication: PROSTATE CANCER METASTATIC
     Route: 051
     Dates: start: 20100608
  6. BEVACIZUMAB [Suspect]
     Route: 051
     Dates: start: 20100719, end: 20100719
  7. PREDNISONE [Suspect]
     Indication: PROSTATE CANCER METASTATIC
     Route: 048
     Dates: start: 20100608
  8. PREDNISONE [Suspect]
     Route: 048
     Dates: start: 20100719, end: 20100809
  9. FLUIDS [Concomitant]
     Indication: PRODUCT USED FOR UNKNOWN INDICATION
     Route: 051
     Dates: start: 20100701
  10. ANTIBIOTICS [Concomitant]
     Indication: PRODUCT USED FOR UNKNOWN INDICATION
     Route: 051
     Dates: start: 20100701

REACTIONS (3)
  - DEHYDRATION [None]
  - NEUTROPHIL COUNT DECREASED [None]
  - PALMAR-PLANTAR ERYTHRODYSAESTHESIA SYNDROME [None]
